FAERS Safety Report 12205658 (Version 2)
Quarter: 2016Q2

REPORT INFORMATION
  Report Type: Report from Study
  Country: US (occurrence: US)
  Receive Date: 20160323
  Receipt Date: 20160401
  Transmission Date: 20160815
  Serious: Yes (Other)
  Sender: FDA-Public Use
  Company Number: US-BAYER-2016-048158

PATIENT
  Age: 88 Year
  Sex: Female

DRUGS (3)
  1. HEPARIN [Suspect]
     Active Substance: HEPARIN SODIUM
     Indication: PULMONARY EMBOLISM
  2. HEPARIN [Suspect]
     Active Substance: HEPARIN SODIUM
     Indication: DEEP VEIN THROMBOSIS
  3. ASPIRIN. [Suspect]
     Active Substance: ASPIRIN
     Indication: PROPHYLACTIC CHEMOTHERAPY

REACTIONS (7)
  - Haemorrhage intracranial [None]
  - Drug ineffective [None]
  - Inappropriate antidiuretic hormone secretion [None]
  - Pulmonary embolism [None]
  - Pelvic venous thrombosis [None]
  - Vena cava thrombosis [None]
  - Labelled drug-drug interaction medication error [None]
